FAERS Safety Report 9255577 (Version 3)
Quarter: 2015Q1

REPORT INFORMATION
  Report Type: Spontaneous
  Country: US (occurrence: US)
  Receive Date: 20130425
  Receipt Date: 20150302
  Transmission Date: 20150721
  Serious: No
  Sender: FDA-Public Use
  Company Number: US-009507513-1304USA011002

PATIENT
  Sex: Male

DRUGS (3)
  1. LIPITOR [Concomitant]
     Active Substance: ATORVASTATIN CALCIUM
     Indication: PRODUCT USED FOR UNKNOWN INDICATION
     Dosage: UNK
     Route: 048
     Dates: start: 1996
  2. PROPECIA [Suspect]
     Active Substance: FINASTERIDE
     Indication: HAIR TRANSPLANT
     Dosage: 1 MG, QD
     Route: 048
     Dates: start: 20050604, end: 201011
  3. ATENOLOL. [Concomitant]
     Active Substance: ATENOLOL
     Indication: HYPERTENSION
     Dosage: 25 MG, QD
     Route: 048
     Dates: start: 1991

REACTIONS (16)
  - Nervous system disorder [Unknown]
  - Brain injury [Unknown]
  - Penis injury [Unknown]
  - Asthenia [Unknown]
  - Anxiety [Unknown]
  - Somatoform disorder [Unknown]
  - Cognitive disorder [Not Recovered/Not Resolved]
  - Testicular atrophy [Unknown]
  - Libido decreased [Unknown]
  - Neuropathy peripheral [Unknown]
  - Sexual dysfunction [Unknown]
  - Depression [Not Recovered/Not Resolved]
  - Erectile dysfunction [Unknown]
  - Road traffic accident [Unknown]
  - Neuropathy peripheral [Unknown]
  - Endocrine disorder [Unknown]

NARRATIVE: CASE EVENT DATE: 2010
